FAERS Safety Report 20736452 (Version 1)
Quarter: 2022Q2

REPORT INFORMATION
  Report Type: Spontaneous
  Country: US (occurrence: US)
  Receive Date: 20220421
  Receipt Date: 20220421
  Transmission Date: 20220721
  Serious: Yes (Other)
  Sender: FDA-Public Use
  Company Number: US-GLAXOSMITHKLINE-US2022065081

PATIENT
  Sex: Female

DRUGS (3)
  1. LAMICTAL [Suspect]
     Active Substance: LAMOTRIGINE
     Indication: Anxiety
     Dosage: UNK
     Dates: start: 201311, end: 2017
  2. LAMICTAL [Suspect]
     Active Substance: LAMOTRIGINE
     Dosage: 1 DF, QD, 100 MG
     Route: 048
     Dates: start: 20220317
  3. LEXAPRO [Suspect]
     Active Substance: ESCITALOPRAM OXALATE
     Indication: Feeling abnormal
     Dosage: UNK
     Dates: start: 2013, end: 2017

REACTIONS (13)
  - Disability [Unknown]
  - Feeling abnormal [Not Recovered/Not Resolved]
  - Asthenia [Not Recovered/Not Resolved]
  - Drug withdrawal syndrome [Unknown]
  - Condition aggravated [Unknown]
  - Nervous system disorder [Unknown]
  - Stress [Unknown]
  - Cognitive disorder [Unknown]
  - Immune system disorder [Unknown]
  - Product substitution issue [Unknown]
  - Divorced [Not Recovered/Not Resolved]
  - Loss of employment [Unknown]
  - Inability to afford medication [Unknown]

NARRATIVE: CASE EVENT DATE: 20130101
